FAERS Safety Report 6135830-1 (Version None)
Quarter: 2009Q1

REPORT INFORMATION
  Report Type: 
  Country: None (occurrence: None)
  Receive Date: 20090327
  Receipt Date: 20090311
  Transmission Date: 20090719
  Serious: Yes (Other)
  Sender: FDA-Public Use
  Company Number: IL-GENENTECH-279426

PATIENT

DRUGS (1)
  1. MABTHERA [Suspect]
     Indication: AUTOIMMUNE DISORDER
     Route: 042

REACTIONS (1)
  - SERUM SICKNESS [None]
